FAERS Safety Report 23845047 (Version 1)
Quarter: 2024Q2

REPORT INFORMATION
  Report Type: Spontaneous
  Country: US (occurrence: US)
  Receive Date: 20240511
  Receipt Date: 20240511
  Transmission Date: 20240716
  Serious: No
  Sender: FDA-Public Use
  Company Number: US-CIPLA LTD.-2023US05475

PATIENT

DRUGS (7)
  1. ALBUTEROL [Suspect]
     Active Substance: ALBUTEROL
     Indication: Chronic obstructive pulmonary disease
     Dosage: 90 MCG, AS NEEDED (0-4 PUFFS A DAY, USES IT WHEN GETS EXHAUSTED, DOES NOT USE IT IF PATIENT DOES NOT
     Dates: start: 2007
  2. ALBUTEROL [Suspect]
     Active Substance: ALBUTEROL
     Indication: Emphysema
     Dosage: 90 MCG, AS NEEDED (0-4 PUFFS A DAY, USES IT WHEN GETS EXHAUSTED, DOES NOT USE IT IF PATIENT DOES NOT
     Dates: start: 2023
  3. ALBUTEROL [Suspect]
     Active Substance: ALBUTEROL
     Dosage: 90 MCG, AS NEEDED (0-4 PUFFS A DAY, USES IT WHEN GETS EXHAUSTED, DOES NOT USE IT IF PATIENT DOES NOT
     Dates: start: 20230906
  4. ALBUTEROL\IPRATROPIUM [Concomitant]
     Active Substance: ALBUTEROL\IPRATROPIUM
     Indication: Chronic obstructive pulmonary disease
     Dosage: UNK, PRN (1-3 TIMES A DAY (SOMEDAYS ONLY 1 AND ON BAD DAYS 3 TIMES A DAY) VIA NEBULIZER
     Route: 065
     Dates: start: 202304
  5. TAMSULOSIN [Concomitant]
     Active Substance: TAMSULOSIN
     Indication: Prostatomegaly
     Dosage: 2 DOSAGE FORM (0.4 MG), QD (TWO CAPSULES, ONCE A DAY)
     Route: 065
     Dates: start: 2017
  6. TAMSULOSIN [Concomitant]
     Active Substance: TAMSULOSIN
     Dosage: 2 DOSAGE FORM, QD (TWO CAPSULES, ONCE A DAY)
     Route: 065
     Dates: start: 20230407
  7. TRELEGY ELLIPTA [Concomitant]
     Active Substance: FLUTICASONE FUROATE\UMECLIDINIUM BROMIDE\VILANTEROL TRIFENATATE
     Indication: Chronic obstructive pulmonary disease
     Dosage: UNK, QD (INHALER)
     Route: 065

REACTIONS (6)
  - COVID-19 [Unknown]
  - Off label use [Unknown]
  - Device delivery system issue [Unknown]
  - Device malfunction [Unknown]
  - Drug ineffective [Unknown]
  - Product quality issue [Unknown]

NARRATIVE: CASE EVENT DATE: 20070101
